FAERS Safety Report 6539686-4 (Version None)
Quarter: 2010Q1

REPORT INFORMATION
  Report Type: 
  Country: None (occurrence: None)
  Receive Date: 20100115
  Receipt Date: 20100106
  Transmission Date: 20100710
  Serious: Yes (Hospitalization, Other)
  Sender: FDA-Public Use
  Company Number: US-JNJFOC-20100101851

PATIENT
  Sex: Male

DRUGS (2)
  1. RISPERDAL [Suspect]
     Indication: DRUG USE FOR UNKNOWN INDICATION
     Route: 048
  2. RISPERDAL [Suspect]
     Dosage: RECENTLY DOSE TITRATED TO 0.25 MG 1 TABLET IN AM AND 2 TABLETS IN PM.
     Route: 048

REACTIONS (2)
  - DERMATITIS EXFOLIATIVE [None]
  - HOSPITALISATION [None]
